FAERS Safety Report 8849456 (Version 1)
Quarter: 2012Q4

REPORT INFORMATION
  Report Type: 
  Country: US (occurrence: US)
  Receive Date: 20121019
  Receipt Date: 20121019
  Transmission Date: 20130627
  Serious: No
  Sender: FDA-Public Use
  Company Number: US-PFIZER INC-2012259351

PATIENT
  Age: 63 Year
  Sex: Female

DRUGS (7)
  1. CELEBREX [Suspect]
     Indication: ARTHRITIS
     Dosage: 200 mg, daily
  2. NAPROXEN [Suspect]
     Indication: ARTHRITIS
     Dosage: a high dose daily
  3. METFORMIN [Concomitant]
     Indication: DIABETES MELLITUS
     Dosage: 1000 mg, 2x/day
  4. GLIMEPIRIDE [Concomitant]
     Indication: DIABETES MELLITUS
     Dosage: 2 mg, daily
  5. SIMVASTATIN [Concomitant]
     Indication: BLOOD CHOLESTEROL ABNORMAL
     Dosage: 20 mg, daily
  6. VOLTAREN [Concomitant]
     Indication: ARTHRITIS
     Dosage: 1% at unk dose, as needed (up to four times in a day)
  7. BENAZEPRIL [Concomitant]
     Indication: BLOOD PRESSURE ABNORMAL
     Dosage: 20 mg, daily

REACTIONS (6)
  - Abdominal pain upper [Recovered/Resolved]
  - Dyspepsia [Recovered/Resolved]
  - Irritable bowel syndrome [Unknown]
  - Drug ineffective [Unknown]
  - Drug resistance [Unknown]
  - Movement disorder [Unknown]
